FAERS Safety Report 13890630 (Version 4)
Quarter: 2019Q4

REPORT INFORMATION
  Report Type: Report from Study
  Country: US (occurrence: US)
  Receive Date: 20170822
  Receipt Date: 20191223
  Transmission Date: 20200122
  Serious: Yes (Other)
  Sender: FDA-Public Use
  Company Number: PHHY2016US083991

PATIENT
  Age: 20 Year
  Sex: Female

DRUGS (2)
  1. SOLU-MEDROL [Concomitant]
     Active Substance: METHYLPREDNISOLONE SODIUM SUCCINATE
     Indication: OPTIC NEURITIS
     Dosage: UNK
     Route: 065
     Dates: start: 20170130, end: 20170201
  2. GILENYA [Suspect]
     Active Substance: FINGOLIMOD HYDROCHLORIDE
     Indication: MULTIPLE SCLEROSIS
     Dosage: UNK, QD
     Route: 048

REACTIONS (23)
  - Arthralgia [Recovered/Resolved]
  - Fall [Unknown]
  - Urinary tract infection [Recovered/Resolved]
  - White blood cell count increased [Unknown]
  - Dry eye [Recovered/Resolved]
  - Bacterial vaginosis [Unknown]
  - Muscular weakness [Not Recovered/Not Resolved]
  - Muscular weakness [Recovered/Resolved]
  - Menorrhagia [Not Recovered/Not Resolved]
  - Breast mass [Not Recovered/Not Resolved]
  - Dizziness [Not Recovered/Not Resolved]
  - Abdominal pain lower [Recovered/Resolved]
  - Pain [Unknown]
  - Vaginal haemorrhage [Recovered/Resolved]
  - Pharyngitis [Recovered/Resolved]
  - Back pain [Not Recovered/Not Resolved]
  - Uterine polyp [Not Recovered/Not Resolved]
  - Optic neuritis [Unknown]
  - Non-cardiac chest pain [Recovered/Resolved]
  - Headache [Recovered/Resolved]
  - Tremor [Not Recovered/Not Resolved]
  - Condition aggravated [Unknown]
  - Visual impairment [Not Recovered/Not Resolved]

NARRATIVE: CASE EVENT DATE: 20160320
